FAERS Safety Report 25817047 (Version 1)
Quarter: 2025Q3

REPORT INFORMATION
  Report Type: Spontaneous
  Country: RU (occurrence: RU)
  Receive Date: 20250918
  Receipt Date: 20250918
  Transmission Date: 20251021
  Serious: Yes (Hospitalization)
  Sender: STRIDES
  Company Number: None

PATIENT
  Age: 10 Year
  Sex: Male
  Weight: 44 kg

DRUGS (13)
  1. ACYCLOVIR [Suspect]
     Active Substance: ACYCLOVIR
     Indication: Anti-infective therapy
     Route: 065
  2. CETIRIZINE [Suspect]
     Active Substance: CETIRIZINE HYDROCHLORIDE
     Indication: Skin weeping
     Route: 048
     Dates: start: 20240916
  3. CETIRIZINE [Suspect]
     Active Substance: CETIRIZINE HYDROCHLORIDE
     Indication: Pruritus
  4. CHLORHEXIDINE [Suspect]
     Active Substance: CHLORHEXIDINE
     Indication: Anti-infective therapy
     Route: 065
     Dates: start: 20240916
  5. ACETONE\BORIC ACID\RESORCINOL [Suspect]
     Active Substance: ACETONE\BORIC ACID\RESORCINOL
     Indication: Anti-infective therapy
     Route: 065
     Dates: start: 20240916
  6. ACETONE\BORIC ACID\RESORCINOL [Suspect]
     Active Substance: ACETONE\BORIC ACID\RESORCINOL
     Route: 065
  7. HYDROCORTISONE\OXYTETRACYCLINE [Suspect]
     Active Substance: HYDROCORTISONE\OXYTETRACYCLINE
     Indication: Anti-infective therapy
     Route: 065
     Dates: start: 20240916
  8. CEFTRIAXONE [Suspect]
     Active Substance: CEFTRIAXONE
     Indication: Anti-infective therapy
     Route: 042
  9. BACITRACIN\NEOMYCIN [Suspect]
     Active Substance: BACITRACIN\NEOMYCIN
     Indication: Anti-infective therapy
     Route: 061
     Dates: start: 20240915
  10. BACITRACIN\NEOMYCIN [Suspect]
     Active Substance: BACITRACIN\NEOMYCIN
     Indication: Anti-infective therapy
     Route: 065
  11. BETAMETHASONE DIPROPIONATE\CLOTRIMAZOLE\GENTAMICIN SULFATE [Suspect]
     Active Substance: BETAMETHASONE DIPROPIONATE\CLOTRIMAZOLE\GENTAMICIN SULFATE
     Indication: Skin plaque
     Route: 065
  12. ZINC [Suspect]
     Active Substance: ZINC
     Indication: Skin weeping
     Route: 065
     Dates: start: 20240916
  13. ZINC [Suspect]
     Active Substance: ZINC
     Indication: Pruritus

REACTIONS (3)
  - Trichophytic granuloma [Recovering/Resolving]
  - Condition aggravated [Recovering/Resolving]
  - Drug ineffective [Unknown]
